FAERS Safety Report 16177533 (Version 1)
Quarter: 2019Q2

REPORT INFORMATION
  Report Type: Spontaneous
  Country: CN (occurrence: CN)
  Receive Date: 20190410
  Receipt Date: 20190410
  Transmission Date: 20190711
  Serious: Yes (Other)
  Sender: FDA-Public Use
  Company Number: CN-BAXTER-2019BAX006939

PATIENT
  Age: 62 Year
  Sex: Female
  Weight: 49 kg

DRUGS (3)
  1. 0.9% SODIUM CHLORIDE INJECTION [Suspect]
     Active Substance: SODIUM CHLORIDE
     Dosage: 0.9%SODIUM CHLORIDE INJECTION 50ML+CYCLOPHOSPHAMIDE INJECTION 1 G MICROPUMP IV PUSH
     Route: 041
     Dates: start: 20190314, end: 20190314
  2. ENDOXAN [Suspect]
     Active Substance: CYCLOPHOSPHAMIDE
     Indication: T-CELL LYMPHOMA
     Dosage: DOSAGE FORM: INJECTION; 0.9%SODIUM CHLORIDE INJECTION 50ML+CYCLOPHOSPHAMIDE INJECTION 1 G MICROPUMP
     Route: 040
     Dates: start: 20190314, end: 20190314
  3. 0.9% SODIUM CHLORIDE INJECTION [Suspect]
     Active Substance: SODIUM CHLORIDE
     Indication: MEDICATION DILUTION
     Dosage: 0.9%SODIUM CHLORIDE INJECTION 100ML+DOXORUBICIN HYDROCHLORIDE LIPOSOME INJECTION (LIBAODUO) 20MG IVG
     Route: 041
     Dates: start: 20190314, end: 20190314

REACTIONS (2)
  - Temperature intolerance [Recovering/Resolving]
  - Hyperpyrexia [Recovering/Resolving]

NARRATIVE: CASE EVENT DATE: 20190314
